FAERS Safety Report 21119456 (Version 1)
Quarter: 2022Q3

REPORT INFORMATION
  Report Type: Spontaneous
  Country: US (occurrence: None)
  Receive Date: 20220721
  Receipt Date: 20220721
  Transmission Date: 20221026
  Serious: No
  Sender: FDA-Public Use
  Company Number: None

PATIENT
  Age: 64 Year
  Sex: Female
  Weight: 47.25 kg

DRUGS (1)
  1. MAGNESIUM CITRATE LEMON [Suspect]
     Active Substance: MAGNESIUM CITRATE
     Indication: Bowel preparation
     Dosage: OTHER QUANTITY : 10 OUNCE(S);?
     Route: 048
     Dates: start: 20220719, end: 20220719

REACTIONS (4)
  - Nausea [None]
  - Abdominal pain upper [None]
  - Insomnia [None]
  - Recalled product administered [None]

NARRATIVE: CASE EVENT DATE: 20220719
